FAERS Safety Report 8570657 (Version 5)
Quarter: 2014Q2

REPORT INFORMATION
  Report Type: Spontaneous
  Country: US (occurrence: US)
  Receive Date: 20120521
  Receipt Date: 20140522
  Transmission Date: 20141212
  Serious: Yes (Death)
  Sender: FDA-Public Use
  Company Number: US-B.I. PHARMACEUTICALS,INC./RIDGEFIELD-2012-BP-11049BP

PATIENT
  Age: 66 Year
  Sex: Female
  Weight: 100 kg

DRUGS (19)
  1. PRADAXA [Suspect]
     Indication: ATRIAL FIBRILLATION
     Dosage: 300 MG
     Route: 048
     Dates: start: 20120210, end: 20120213
  2. PRADAXA [Suspect]
     Indication: ANTICOAGULANT THERAPY
  3. CALCIUM/VITAMIN D [Concomitant]
     Route: 065
  4. VITAMIN C [Concomitant]
     Route: 065
  5. FLAX OIL [Concomitant]
     Route: 065
  6. CENTRUM SILVER [Concomitant]
     Route: 065
  7. COQ10 [Concomitant]
     Route: 065
  8. LASIX [Concomitant]
     Route: 065
  9. INDERAL [Concomitant]
     Route: 065
  10. MEVACOR [Concomitant]
     Route: 065
  11. NEXIUM [Concomitant]
     Route: 065
  12. NIASPAN [Concomitant]
     Route: 065
  13. POTASSIUM CHLORIDE [Concomitant]
     Route: 065
  14. SINGULAIR [Concomitant]
     Route: 065
  15. TRIAMTERENE HCTZ [Concomitant]
     Route: 065
  16. EFFEXOR [Concomitant]
     Route: 065
  17. VITAMIN B COMPLEX [Concomitant]
     Route: 065
  18. VITAMIN B12 [Concomitant]
     Route: 065
  19. ASPIRIN [Concomitant]
     Route: 065

REACTIONS (1)
  - Cardiac arrest [Fatal]
